FAERS Safety Report 7775385 (Version 3)
Quarter: 2013Q2

REPORT INFORMATION
  Report Type: Spontaneous
  Country: BR (occurrence: BR)
  Receive Date: 20110126
  Receipt Date: 20130610
  Transmission Date: 20140414
  Serious: Yes (Other)
  Sender: FDA-Public Use
  Company Number: BR-PFIZER INC-2011015003

PATIENT
  Age: 58 Year
  Sex: Male
  Weight: 85 kg

DRUGS (4)
  1. XALATAN [Suspect]
     Indication: GLAUCOMA
     Dosage: UNK, 1X/DAY
     Route: 047
     Dates: start: 201007, end: 201304
  2. TIMOLOL MALEATE [Suspect]
     Indication: GLAUCOMA
     Dosage: UNK
     Route: 047
  3. ALPRAZOLAM [Concomitant]
     Indication: ANXIETY
     Dosage: 1 MG, 1X/DAY
     Dates: start: 2009
  4. ALPRAZOLAM [Concomitant]
     Indication: NERVOUS SYSTEM DISORDER

REACTIONS (8)
  - Heart rate decreased [Recovering/Resolving]
  - Cataract [Unknown]
  - Anxiety [Recovering/Resolving]
  - Dyspnoea [Recovering/Resolving]
  - Incorrect dose administered [Unknown]
  - Foreign body sensation in eyes [Recovering/Resolving]
  - Eye irritation [Unknown]
  - Off label use [Unknown]
